FAERS Safety Report 15582880 (Version 1)
Quarter: 2018Q4

REPORT INFORMATION
  Report Type: Spontaneous
  Country: US (occurrence: US)
  Receive Date: 20181030
  Receipt Date: 20181030
  Transmission Date: 20190205
  Serious: Yes (Other)
  Sender: FDA-Public Use
  Company Number: None

PATIENT
  Sex: Male

DRUGS (1)
  1. DOFETILIDE 0.25MG MAYNE PHARMA [Suspect]
     Active Substance: DOFETILIDE
     Indication: ILL-DEFINED DISORDER
     Route: 048
     Dates: start: 20170331, end: 20181026

REACTIONS (1)
  - Ventricular extrasystoles [None]
